FAERS Safety Report 6663745-9 (Version None)
Quarter: 2010Q2

REPORT INFORMATION
  Report Type: 
  Country: None (occurrence: None)
  Receive Date: 20100401
  Receipt Date: 20100324
  Transmission Date: 20101027
  Serious: Yes (Hospitalization)
  Sender: FDA-Public Use
  Company Number: CN-ABBOTT-10P-035-0634391-00

PATIENT
  Age: 25 Year
  Sex: Male
  Weight: 47 kg

DRUGS (3)
  1. SEVOFLURANE [Suspect]
     Indication: ANAESTHESIA
     Dosage: 1%, 1 L/MIN
     Route: 055
     Dates: start: 20100324, end: 20100324
  2. VECURONIUM BROMIDE [Concomitant]
     Indication: ANAESTHESIA
     Route: 042
     Dates: start: 20100324, end: 20100324
  3. NITROUS OXIDE [Concomitant]
     Indication: ANAESTHESIA
     Route: 055
     Dates: start: 20100324, end: 20100324

REACTIONS (4)
  - BLOOD POTASSIUM INCREASED [None]
  - HYPERTHERMIA MALIGNANT [None]
  - OPERATIVE HAEMORRHAGE [None]
  - OXYGEN SATURATION DECREASED [None]
